FAERS Safety Report 7781179-0 (Version None)
Quarter: 2011Q3

REPORT INFORMATION
  Report Type: 
  Country: None (occurrence: None)
  Receive Date: 20110927
  Receipt Date: 20110912
  Transmission Date: 20111222
  Serious: Yes (Other)
  Sender: FDA-Public Use
  Company Number: GB-WATSON-2011-14739

PATIENT
  Age: 1 Year

DRUGS (5)
  1. CERVARIX [Suspect]
     Indication: PROPHYLAXIS
     Dosage: 1 DF, DAILY
     Route: 064
     Dates: start: 20090216, end: 20090216
  2. CERVARIX [Concomitant]
     Dosage: 1 DF, DAILY
     Route: 058
     Dates: start: 20090119, end: 20090119
  3. ALBUTEROL [Suspect]
     Indication: PRODUCT USED FOR UNKNOWN INDICATION
     Dosage: 2 DF, PRN
     Route: 064
  4. SERETIDE [Suspect]
     Indication: PRODUCT USED FOR UNKNOWN INDICATION
     Dosage: UNK
     Route: 064
  5. NORGESTIMATE AND ETHINYL ESTRADIOL [Concomitant]
     Indication: PRODUCT USED FOR UNKNOWN INDICATION
     Dosage: UNK
     Route: 065

REACTIONS (2)
  - SEIZURE ANOXIC [None]
  - MATERNAL EXPOSURE DURING PREGNANCY [None]
